FAERS Safety Report 6202052-5 (Version None)
Quarter: 2009Q2

REPORT INFORMATION
  Report Type: 
  Country: None (occurrence: None)
  Receive Date: 20090526
  Receipt Date: 20090515
  Transmission Date: 20091009
  Serious: Yes (Hospitalization)
  Sender: FDA-Public Use
  Company Number: B0574207A

PATIENT
  Sex: Male

DRUGS (14)
  1. AUGMENTIN '125' [Suspect]
     Indication: ANTIBIOTIC THERAPY
     Dosage: 3G PER DAY
     Route: 042
     Dates: start: 20090330, end: 20090401
  2. GENTALLINE [Suspect]
     Indication: ANTIBIOTIC THERAPY
     Dosage: 180MG PER DAY
     Route: 042
     Dates: start: 20090330, end: 20090406
  3. CLAFORAN [Concomitant]
     Route: 042
     Dates: end: 20090405
  4. DECAPEPTYL [Concomitant]
     Route: 065
  5. DIETHYL-STILBESTROL TAB [Concomitant]
     Route: 065
  6. LYRICA [Concomitant]
     Route: 065
  7. DURAGESIC-100 [Concomitant]
     Route: 065
  8. OXYNORM [Concomitant]
     Route: 065
  9. IMOVANE [Concomitant]
     Route: 065
  10. URISPAS [Concomitant]
     Route: 065
  11. ALFUZOSINE [Concomitant]
     Route: 065
  12. PAROXETINE HCL [Concomitant]
     Route: 065
  13. OXYCONTIN [Concomitant]
     Route: 065
  14. FLAGYL [Concomitant]
     Dates: end: 20090406

REACTIONS (2)
  - RASH [None]
  - RASH MACULO-PAPULAR [None]
